FAERS Safety Report 23226919 (Version 2)
Quarter: 2024Q3

REPORT INFORMATION
  Report Type: Report from Study
  Country: BR (occurrence: BR)
  Receive Date: 20231124
  Receipt Date: 20240801
  Transmission Date: 20241016
  Serious: Yes (Hospitalization, Other)
  Sender: NOVARTIS
  Company Number: BR-002147023-NVSC2023BR248653

PATIENT
  Sex: Female

DRUGS (3)
  1. ENTRESTO [Suspect]
     Active Substance: SACUBITRIL\VALSARTAN
     Indication: Product used for unknown indication
     Dosage: 0.5 DOSAGE FORM (HALF TABLET AT NIGHT), QD
     Route: 065
  2. XARELTO [Concomitant]
     Active Substance: RIVAROXABAN
     Indication: Product used for unknown indication
     Dosage: UNK
     Route: 065
  3. CARVEDILOL [Concomitant]
     Active Substance: CARVEDILOL
     Indication: Product used for unknown indication
     Dosage: UNK
     Route: 065

REACTIONS (8)
  - Hypertension [Unknown]
  - Cerebrovascular accident [Unknown]
  - Speech disorder [Unknown]
  - Alexithymia [Unknown]
  - Gait disturbance [Unknown]
  - Underdose [Unknown]
  - Intentional product use issue [Unknown]
  - Wrong technique in product usage process [Unknown]
